FAERS Safety Report 11423180 (Version 1)
Quarter: 2015Q3

REPORT INFORMATION
  Report Type: Spontaneous
  Country: GR (occurrence: GR)
  Receive Date: 20150827
  Receipt Date: 20150827
  Transmission Date: 20151125
  Serious: Yes (Other)
  Sender: FDA-Public Use
  Company Number: GR-PFIZER INC-2015242578

PATIENT
  Age: 69 Year
  Sex: Female

DRUGS (2)
  1. EPANUTIN [Suspect]
     Active Substance: PHENYTOIN SODIUM
     Dosage: 100 MG, 3X/DAY
     Dates: start: 20150523
  2. VITAMIN C [Concomitant]
     Active Substance: ASCORBIC ACID

REACTIONS (14)
  - Malaise [Unknown]
  - Fall [Unknown]
  - Muscle twitching [Unknown]
  - Head injury [Unknown]
  - Eye disorder [Unknown]
  - Gait disturbance [Unknown]
  - Skin discolouration [Unknown]
  - Gamma-glutamyltransferase increased [Unknown]
  - Gingival swelling [Unknown]
  - Liver function test abnormal [Unknown]
  - Gingival pain [Unknown]
  - Muscular weakness [Unknown]
  - Thermal burn [Unknown]
  - Nervousness [Unknown]

NARRATIVE: CASE EVENT DATE: 201507
